FAERS Safety Report 8912012 (Version 4)
Quarter: 2013Q4

REPORT INFORMATION
  Report Type: Report from Study
  Country: JP (occurrence: JP)
  Receive Date: 20121116
  Receipt Date: 20131015
  Transmission Date: 20140711
  Serious: Yes (Hospitalization, Other)
  Sender: FDA-Public Use
  Company Number: JP-VERTEX PHARMACEUTICAL INC.-2012-024617

PATIENT
  Age: 50 Year
  Sex: Male

DRUGS (14)
  1. VX-950 (TELAPREVIR) [Suspect]
     Indication: CHRONIC HEPATITIS C
     Dosage: 1500 MG, QD
     Route: 048
     Dates: start: 20120807, end: 20120924
  2. REBETOL [Suspect]
     Indication: CHRONIC HEPATITIS C
     Dosage: 800 MG, QD
     Route: 048
     Dates: start: 20120807, end: 20120814
  3. REBETOL [Suspect]
     Dosage: 600 MG, QD
     Route: 048
     Dates: start: 20120815, end: 20120826
  4. REBETOL [Suspect]
     Dosage: 400 MG, QD
     Route: 048
     Dates: start: 20120827, end: 20120902
  5. REBETOL [Suspect]
     Dosage: 200 MG, QD
     Route: 048
     Dates: start: 20120903, end: 20120924
  6. REBETOL [Suspect]
     Dosage: 400 MG, QD
     Route: 048
     Dates: start: 20121015, end: 20121028
  7. REBETOL [Suspect]
     Dosage: 600 MG, QD
     Route: 048
     Dates: start: 20121029, end: 20121202
  8. REBETOL [Suspect]
     Dosage: 400 MG, QD
     Route: 048
     Dates: start: 20121203
  9. PEGINTERFERON ALFA-2B [Suspect]
     Indication: CHRONIC HEPATITIS C
     Dosage: 1.5 ?G/KG, QW
     Route: 058
     Dates: start: 20120807, end: 20120924
  10. PEGINTERFERON ALFA-2B [Suspect]
     Dosage: 1.5 ?G/KG, QW
     Route: 058
     Dates: start: 20121015, end: 20121216
  11. PEGINTERFERON ALFA-2B [Suspect]
     Dosage: 0.75 ?G/KG, QW
     Route: 058
     Dates: start: 20121217, end: 20130114
  12. PEGINTERFERON ALFA-2B [Suspect]
     Dosage: 1.5 ?G/KG, QW
     Route: 058
     Dates: start: 20130115, end: 20130128
  13. RIKKUNSHITO [Concomitant]
     Dosage: 7.5 G, QD
     Route: 048
     Dates: start: 20120807, end: 20120924
  14. PARIET [Concomitant]
     Dosage: 10 MG, QD
     Route: 048
     Dates: start: 20120811

REACTIONS (2)
  - White blood cell count decreased [Recovered/Resolved]
  - Rash [Recovered/Resolved]
